FAERS Safety Report 18667817 (Version 2)
Quarter: 2021Q1

REPORT INFORMATION
  Report Type: Spontaneous
  Country: US (occurrence: US)
  Receive Date: 20201228
  Receipt Date: 20210224
  Transmission Date: 20210419
  Serious: Yes (Hospitalization)
  Sender: FDA-Public Use
  Company Number: US-BIOVITRUM-2020US7961

PATIENT
  Sex: Female
  Weight: 2 kg

DRUGS (2)
  1. SYNAGIS [Suspect]
     Active Substance: PALIVIZUMAB
     Indication: PREMATURE BABY
     Dosage: 50MG/0.5ML VL LIQUID
     Route: 030
     Dates: start: 20201209
  2. EPINEPHRINE HCL [Concomitant]
     Active Substance: EPINEPHRINE

REACTIONS (1)
  - Ill-defined disorder [Unknown]
